FAERS Safety Report 20106060 (Version 5)
Quarter: 2022Q2

REPORT INFORMATION
  Report Type: Spontaneous
  Country: US (occurrence: US)
  Receive Date: 20211124
  Receipt Date: 20220610
  Transmission Date: 20220721
  Serious: Yes (Other)
  Sender: FDA-Public Use
  Company Number: US-TEVA-2021-US-1979045

PATIENT
  Age: 77 Year
  Sex: Female

DRUGS (3)
  1. CLONAZEPAM [Suspect]
     Active Substance: CLONAZEPAM
     Indication: Sleep disorder
     Dosage: TWO 0.5 MG TABLETS AT BEDTIME, 1 EARLY IN THE MORNING IF CAN^T GO BACK TO SLEEP
     Route: 065
     Dates: start: 2011
  2. CLONAZEPAM [Suspect]
     Active Substance: CLONAZEPAM
     Indication: Anxiety
  3. CLONAZEPAM [Suspect]
     Active Substance: CLONAZEPAM
     Indication: Insomnia

REACTIONS (12)
  - Crohn^s disease [Unknown]
  - Diarrhoea [Not Recovered/Not Resolved]
  - Constipation [Not Recovered/Not Resolved]
  - Product use in unapproved indication [Unknown]
  - Depression [Unknown]
  - Therapeutic product effect variable [Unknown]
  - Extra dose administered [Unknown]
  - Drug ineffective [Unknown]
  - Terminal insomnia [Unknown]
  - Colitis [Unknown]
  - Drooling [Unknown]
  - Rhinorrhoea [Unknown]

NARRATIVE: CASE EVENT DATE: 20211112
